FAERS Safety Report 23149776 (Version 2)
Quarter: 2023Q4

REPORT INFORMATION
  Report Type: Spontaneous
  Country: US (occurrence: US)
  Receive Date: 20231106
  Receipt Date: 20231116
  Transmission Date: 20240110
  Serious: No
  Sender: FDA-Public Use
  Company Number: US-JNJFOC-20231076227

PATIENT
  Sex: Male

DRUGS (9)
  1. CARVYKTI [Suspect]
     Active Substance: CILTACABTAGENE AUTOLEUCEL
     Indication: Product used for unknown indication
     Route: 042
  2. CARVYKTI [Suspect]
     Active Substance: CILTACABTAGENE AUTOLEUCEL
     Route: 042
  3. BENDAMUSTINE [Concomitant]
     Active Substance: BENDAMUSTINE
  4. ACYCLOVIR [Concomitant]
     Active Substance: ACYCLOVIR
  5. ERGOCALCIFEROL [Concomitant]
     Active Substance: ERGOCALCIFEROL
  6. CALCIUM CARBONATE\CHOLECALCIFEROL [Concomitant]
     Active Substance: CALCIUM CARBONATE\CHOLECALCIFEROL
  7. KEPPRA [Concomitant]
     Active Substance: LEVETIRACETAM
  8. ATIVAN [Concomitant]
     Active Substance: LORAZEPAM
     Indication: Nausea
  9. ZOFRAN [Concomitant]
     Active Substance: ONDANSETRON HYDROCHLORIDE
     Indication: Nausea

REACTIONS (2)
  - Product container issue [Unknown]
  - Product dose omission issue [Unknown]
